FAERS Safety Report 8297231-X (Version None)
Quarter: 2012Q2

REPORT INFORMATION
  Report Type: 
  Country: None (occurrence: None)
  Receive Date: 20120416
  Receipt Date: 20120402
  Transmission Date: 20120825
  Serious: Yes (Life-Threatening, Hospitalization)
  Sender: FDA-Public Use
  Company Number: WAES 1204USA01149

PATIENT
  Age: 70 Year
  Sex: Female

DRUGS (9)
  1. LANSOPRAZOLE [Concomitant]
  2. ZOLINZA [Suspect]
     Indication: MYCOSIS FUNGOIDES
     Dosage: 200 MG/DAILY
     Route: 048
     Dates: start: 20111118, end: 20111212
  3. PREDNISOLONE [Concomitant]
  4. AMLODIPINE BESYLATE [Concomitant]
  5. OLOPATADINE HCL [Concomitant]
  6. OLMESARTAN MEDOXOMIL [Concomitant]
  7. PREDNISOLONE [Concomitant]
  8. LEVOTHYROXINE SODIUM [Concomitant]
  9. FOSAMAX [Concomitant]

REACTIONS (3)
  - PYELONEPHRITIS [None]
  - RENAL FAILURE ACUTE [None]
  - RESPIRATORY DISORDER [None]
